FAERS Safety Report 5165932-8 (Version None)
Quarter: 2006Q4

REPORT INFORMATION
  Report Type: 
  Country: None (occurrence: None)
  Receive Date: 20061206
  Receipt Date: 20061026
  Transmission Date: 20070319
  Serious: Yes (Death, Hospitalization)
  Sender: FDA-Public Use
  Company Number: FR-BOEHRINGER INGELHEIM GMBH, GERMANY-2006-FF-01181FF

PATIENT
  Sex: Male
  Weight: 90 kg

DRUGS (4)
  1. TIPRANAVIR + RITONAVIR COADM [Suspect]
     Indication: HIV INFECTION
     Dosage: TPV/RTV: 500/200 MG B.I.D.
     Route: 048
     Dates: start: 20050707, end: 20050711
  2. VIREAD [Concomitant]
     Indication: HIV INFECTION
     Route: 048
     Dates: start: 20040701, end: 20050711
  3. FUZEON [Concomitant]
     Indication: HIV INFECTION
     Route: 058
     Dates: start: 20050707, end: 20050711
  4. EMTRIVA [Concomitant]
     Indication: HIV INFECTION
     Route: 048
     Dates: start: 20040701, end: 20050711

REACTIONS (1)
  - CEREBRAL HAEMORRHAGE [None]
